FAERS Safety Report 14542479 (Version 1)
Quarter: 2018Q1

REPORT INFORMATION
  Report Type: Spontaneous
  Country: US (occurrence: US)
  Receive Date: 20180216
  Receipt Date: 20180216
  Transmission Date: 20180509
  Serious: Yes (Other)
  Sender: FDA-Public Use
  Company Number: US-OTSUKA-DJ201404002

PATIENT

DRUGS (1)
  1. ABILIFY [Suspect]
     Active Substance: ARIPIPRAZOLE
     Indication: BIPOLAR DISORDER
     Route: 048
     Dates: start: 2005

REACTIONS (3)
  - Back disorder [Not Recovered/Not Resolved]
  - Urinary incontinence [Unknown]
  - Nephropathy [Recovering/Resolving]

NARRATIVE: CASE EVENT DATE: 2008
